FAERS Safety Report 21897992 (Version 1)
Quarter: 2023Q1

REPORT INFORMATION
  Report Type: Spontaneous
  Country: US (occurrence: None)
  Receive Date: 20230120
  Receipt Date: 20230120
  Transmission Date: 20230417
  Serious: Yes (Other)
  Sender: FDA-Public Use
  Company Number: None

PATIENT
  Age: 72 Year
  Sex: Female
  Weight: 76.05 kg

DRUGS (18)
  1. JARDIANCE [Suspect]
     Active Substance: EMPAGLIFLOZIN
     Indication: Type 2 diabetes mellitus
     Route: 048
     Dates: start: 20221205, end: 20230112
  2. VENLAFAXINE [Concomitant]
     Active Substance: VENLAFAXINE HYDROCHLORIDE
  3. SOTALOL [Concomitant]
     Active Substance: SOTALOL
  4. LIPITOR [Concomitant]
     Active Substance: ATORVASTATIN CALCIUM
  5. CARBIDOPA\LEVODOPA [Concomitant]
     Active Substance: CARBIDOPA\LEVODOPA
  6. TRAMADOL [Concomitant]
     Active Substance: TRAMADOL
  7. CYCLOBENZAPRINE [Concomitant]
     Active Substance: CYCLOBENZAPRINE
  8. LOSARTAN [Concomitant]
     Active Substance: LOSARTAN
  9. AMLODIPINE [Concomitant]
     Active Substance: AMLODIPINE BESYLATE
  10. PANTOPRAZOLE SODIUM [Concomitant]
     Active Substance: PANTOPRAZOLE SODIUM
  11. PEPCID [Concomitant]
     Active Substance: FAMOTIDINE
  12. CLONAZEPAM [Concomitant]
     Active Substance: CLONAZEPAM
  13. GABAPENTIN [Concomitant]
     Active Substance: GABAPENTIN
  14. ECOTRIN [Concomitant]
     Active Substance: ASPIRIN
  15. VITAMIN D [Concomitant]
     Active Substance: VITAMIN D NOS
  16. MELATONIN [Concomitant]
     Active Substance: MELATONIN
  17. LYSINE [Concomitant]
     Active Substance: LYSINE
  18. DICLOFENAC [Concomitant]
     Active Substance: DICLOFENAC

REACTIONS (2)
  - Urinary incontinence [None]
  - Productive cough [None]

NARRATIVE: CASE EVENT DATE: 20221225
